FAERS Safety Report 10867938 (Version 1)
Quarter: 2015Q1

REPORT INFORMATION
  Report Type: Spontaneous
  Country: US (occurrence: US)
  Receive Date: 20150225
  Receipt Date: 20150225
  Transmission Date: 20150721
  Serious: No
  Sender: FDA-Public Use
  Company Number: US-VIVUS-2014V1000691

PATIENT
  Age: 68 Year
  Sex: Male
  Weight: 99.88 kg

DRUGS (3)
  1. STENDRA [Suspect]
     Active Substance: AVANAFIL
     Route: 048
     Dates: start: 20141214
  2. STENDRA [Suspect]
     Active Substance: AVANAFIL
     Route: 048
     Dates: start: 20141125
  3. STENDRA [Suspect]
     Active Substance: AVANAFIL
     Indication: ERECTILE DYSFUNCTION
     Route: 048
     Dates: start: 20141122

REACTIONS (1)
  - Drug ineffective [Unknown]

NARRATIVE: CASE EVENT DATE: 20141122
